FAERS Safety Report 5942951-2 (Version None)
Quarter: 2008Q4

REPORT INFORMATION
  Report Type: 
  Country: None (occurrence: None)
  Receive Date: 20081106
  Receipt Date: 20081103
  Transmission Date: 20090506
  Serious: Yes (Death)
  Sender: FDA-Public Use
  Company Number: US-ASTRAZENECA-2008UW12310

PATIENT
  Age: 46 Year
  Sex: Male
  Weight: 127 kg

DRUGS (2)
  1. SEROQUEL [Suspect]
     Indication: BIPOLAR DISORDER
     Route: 048
     Dates: start: 20050818, end: 20071018
  2. WELLBUTRIN [Concomitant]
     Dates: start: 20060301, end: 20071001

REACTIONS (6)
  - DIABETES MELLITUS [None]
  - DIABETIC FOOT [None]
  - DRUG TOXICITY [None]
  - HYPERTENSIVE HEART DISEASE [None]
  - MIGRAINE [None]
  - MUSCULOSKELETAL PAIN [None]
